FAERS Safety Report 5045469-7 (Version None)
Quarter: 2006Q3

REPORT INFORMATION
  Report Type: 
  Country: None (occurrence: None)
  Receive Date: 20060707
  Receipt Date: 20051003
  Transmission Date: 20061208
  Serious: Yes (Other)
  Sender: FDA-Public Use
  Company Number: 200512816JP

PATIENT
  Age: 43 Year
  Sex: Female
  Weight: 61 kg

DRUGS (5)
  1. LANTUS [Suspect]
     Indication: DIABETES MELLITUS INSULIN-DEPENDENT
     Dosage: DOSE UNIT: UNITS
     Route: 058
     Dates: start: 20040227, end: 20050624
  2. OPTIPEN (INSULIN PUMP) [Suspect]
  3. NOVORAPID [Concomitant]
     Indication: DIABETES MELLITUS INSULIN-DEPENDENT
     Dosage: DOSE: 9 TO 11; DOSE UNIT: UNITS
     Route: 058
     Dates: start: 19991130
  4. TANATRIL [Concomitant]
     Indication: DIABETIC NEPHROPATHY
     Dosage: DOSE: 1 TABLET
     Route: 048
     Dates: start: 20020809
  5. CYANOCOBALAMIN [Concomitant]
     Indication: NERVE INJURY
     Dosage: DOSE: 3 TABLETS
     Route: 048
     Dates: start: 19981211

REACTIONS (2)
  - CONDITION AGGRAVATED [None]
  - DIABETIC RETINOPATHY [None]
